FAERS Safety Report 18778474 (Version 2)
Quarter: 2021Q1

REPORT INFORMATION
  Report Type: Report from Study
  Country: CA (occurrence: CA)
  Receive Date: 20210123
  Receipt Date: 20210204
  Transmission Date: 20210419
  Serious: Yes (Other)
  Sender: FDA-Public Use
  Company Number: CA-TEVA-2021-CA-1870383

PATIENT
  Age: 41 Year
  Sex: Female

DRUGS (2)
  1. VITAMIN D [Concomitant]
     Active Substance: VITAMIN D NOS
  2. COPAXONE [Suspect]
     Active Substance: GLATIRAMER ACETATE
     Indication: MULTIPLE SCLEROSIS
     Dosage: 20 MILLIGRAM DAILY;
     Dates: start: 20180709

REACTIONS (8)
  - Flushing [Recovered/Resolved]
  - Pharyngeal swelling [Unknown]
  - Urticaria [Unknown]
  - Fatigue [Unknown]
  - Dyspnoea [Unknown]
  - Presyncope [Recovered/Resolved]
  - Lip swelling [Unknown]
  - Heart rate increased [Recovered/Resolved]

NARRATIVE: CASE EVENT DATE: 20210112
